FAERS Safety Report 8539581-5 (Version None)
Quarter: 2012Q3

REPORT INFORMATION
  Report Type: 
  Country: None (occurrence: None)
  Receive Date: 20120726
  Receipt Date: 20120713
  Transmission Date: 20120928
  Serious: Yes (Other)
  Sender: FDA-Public Use
  Company Number: US-ELI_LILLY_AND_COMPANY-US201207004541

PATIENT
  Sex: Female

DRUGS (6)
  1. CYMBALTA [Suspect]
     Dosage: 60 MG, QD
     Route: 065
     Dates: start: 20120323
  2. CYMBALTA [Suspect]
     Dosage: 40 MG, QD
     Route: 065
     Dates: start: 20120314, end: 20120323
  3. VITAMIN B-12 [Concomitant]
     Dosage: 1000 UG, MONTHLY (1/M)
  4. CYMBALTA [Suspect]
     Indication: NEURALGIA
     Dosage: 20 MG, QD
     Route: 065
     Dates: start: 20120307, end: 20120314
  5. CYMBALTA [Suspect]
     Dosage: UNK, UNKNOWN
     Route: 065
     Dates: end: 20120701
  6. TYLENOL                                 /SCH/ [Concomitant]
     Dosage: UNK, PRN
     Route: 065

REACTIONS (4)
  - ENDOMETRIAL ABLATION [None]
  - WOUND [None]
  - PRURITUS [None]
  - CONTUSION [None]
